FAERS Safety Report 6820542-9 (Version None)
Quarter: 2010Q3

REPORT INFORMATION
  Report Type: 
  Country: None (occurrence: None)
  Receive Date: 20100707
  Receipt Date: 20100628
  Transmission Date: 20110219
  Serious: Yes (Other)
  Sender: FDA-Public Use
  Company Number: CZ-BRISTOL-MYERS SQUIBB COMPANY-15178361

PATIENT
  Age: 47 Year
  Sex: Male

DRUGS (5)
  1. CYCLOPHOSPHAMIDE [Suspect]
     Indication: NON-HODGKIN'S LYMPHOMA
     Dates: start: 20080801, end: 20081101
  2. DOXORUBICIN HCL [Suspect]
     Indication: NON-HODGKIN'S LYMPHOMA
     Dates: start: 20080801, end: 20081101
  3. VINCRISTINE SULFATE [Suspect]
     Indication: NON-HODGKIN'S LYMPHOMA
     Dates: start: 20080801, end: 20081101
  4. PREDNISONE [Suspect]
     Indication: NON-HODGKIN'S LYMPHOMA
     Dates: start: 20080801, end: 20081101
  5. RITUXIMAB [Suspect]
     Indication: NON-HODGKIN'S LYMPHOMA
     Dates: start: 20080801, end: 20081101

REACTIONS (4)
  - HEPATIC ENCEPHALOPATHY [None]
  - HEPATIC FAILURE [None]
  - HEPATITIS B [None]
  - LIVER TRANSPLANT [None]
